FAERS Safety Report 7505179-0 (Version None)
Quarter: 2011Q2

REPORT INFORMATION
  Report Type: 
  Country: None (occurrence: None)
  Receive Date: 20110526
  Receipt Date: 20110516
  Transmission Date: 20111010
  Serious: Yes (Hospitalization, Other)
  Sender: FDA-Public Use
  Company Number: JP-AMGEN-JPNSP2011020007

PATIENT
  Age: 66 Year
  Sex: Male
  Weight: 56 kg

DRUGS (9)
  1. ENBREL [Suspect]
     Dosage: 25 MG, 2X/WEEK
     Route: 058
     Dates: start: 20110101
  2. PREDNISOLONE [Concomitant]
     Dosage: 1 MG, 2X/DAY
     Route: 048
     Dates: start: 20090908, end: 20091103
  3. PREDNISOLONE [Concomitant]
     Dosage: 1 MG, 1X/DAY
     Route: 048
     Dates: start: 20091104, end: 20100209
  4. PROMAC [Concomitant]
     Indication: PROPHYLAXIS
     Dosage: 0.5 G, 2X/DAY
     Route: 048
     Dates: start: 20090430, end: 20100209
  5. RESTAMIN [Concomitant]
     Indication: PROPHYLAXIS
     Dosage: 10 MG, 2X/WEEK
     Route: 048
     Dates: start: 20090430, end: 20101122
  6. PREDNISOLONE [Concomitant]
     Indication: RHEUMATOID ARTHRITIS
     Dosage: 2 MG, 2X/DAY
     Route: 048
     Dates: start: 20090430, end: 20090520
  7. ACETAMINOPHEN [Concomitant]
     Indication: PROPHYLAXIS
     Dosage: 200 MG, WEEKLY
     Route: 048
     Dates: start: 20090430, end: 20101122
  8. ENBREL [Suspect]
     Indication: RHEUMATOID ARTHRITIS
     Dosage: 25 MG, 2X/WEEK
     Route: 058
     Dates: start: 20090422, end: 20101122
  9. PREDNISOLONE [Concomitant]
     Dosage: 2 MG, 1X, 1 MG, 1X/DAY
     Route: 048
     Dates: start: 20090521, end: 20090907

REACTIONS (3)
  - RHEUMATOID ARTHRITIS [None]
  - PNEUMONIA BACTERIAL [None]
  - ORGANISING PNEUMONIA [None]
